FAERS Safety Report 12248842 (Version 1)
Quarter: 2016Q2

REPORT INFORMATION
  Report Type: Spontaneous
  Country: IT (occurrence: IT)
  Receive Date: 20160408
  Receipt Date: 20160408
  Transmission Date: 20160815
  Serious: Yes (Other)
  Sender: FDA-Public Use
  Company Number: IT-SUN PHARMACEUTICAL INDUSTRIES LTD-2016RR-114620

PATIENT
  Age: 67 Year
  Sex: Female
  Weight: 37 kg

DRUGS (3)
  1. FLUOROURACIL. [Concomitant]
     Active Substance: FLUOROURACIL
     Indication: PRODUCT USED FOR UNKNOWN INDICATION
     Dosage: 377.6 MG
     Route: 042
     Dates: start: 20151006, end: 20160322
  2. OXALIPLATINO SUN 5 MG/ML, CONCENTRATO PER SOLUZIONE PER INFUSIONE [Suspect]
     Active Substance: OXALIPLATIN
     Indication: COLON CANCER
     Dosage: 80 MG CYCLICAL
     Route: 042
     Dates: start: 20151006, end: 20160308
  3. FLUOROURACIL. [Concomitant]
     Active Substance: FLUOROURACIL
     Dosage: 2266 MG
     Route: 041
     Dates: start: 20151006, end: 20160322

REACTIONS (1)
  - Neurotoxicity [Recovered/Resolved with Sequelae]

NARRATIVE: CASE EVENT DATE: 20160308
